FAERS Safety Report 5465970-1 (Version None)
Quarter: 2007Q3

REPORT INFORMATION
  Report Type: 
  Country: None (occurrence: None)
  Receive Date: 20070924
  Receipt Date: 20070911
  Transmission Date: 20080115
  Serious: Yes (Hospitalization)
  Sender: FDA-Public Use
  Company Number: FR-ROXANE LABORATORIES, INC-2007-DE-05678IS

PATIENT
  Sex: Male

DRUGS (10)
  1. FORLAX [Suspect]
     Route: 048
  2. ELOXATIN [Suspect]
     Indication: COLON CANCER
     Dosage: DAILY DOSE: 85 MG/M2 (130 MG)
     Route: 042
     Dates: start: 20070401, end: 20070725
  3. LEDERFOLINE [Suspect]
     Indication: COLON CANCER
     Dosage: DAILY DOSE: 400 MG/M2 (590 MG)
     Route: 042
     Dates: start: 20070401, end: 20070807
  4. FLUOROURACIL [Suspect]
     Indication: COLON CANCER
     Route: 042
     Dates: start: 20070401, end: 20070807
  5. ZOFRAN [Suspect]
     Indication: COLON CANCER
     Route: 048
  6. DURAGESIC-100 [Suspect]
     Indication: CANCER PAIN
     Dosage: DAILY DOSE: 25 MCG / HOUR
     Route: 062
  7. PAROXETINE [Suspect]
     Route: 048
  8. LEXOMIL [Suspect]
     Route: 048
  9. XALATAN [Concomitant]
     Route: 065
  10. COSOPT [Concomitant]
     Route: 065

REACTIONS (2)
  - CEREBELLAR SYNDROME [None]
  - CHEST PAIN [None]
